FAERS Safety Report 8581110-4 (Version None)
Quarter: 2012Q2

REPORT INFORMATION
  Report Type: 
  Country: None (occurrence: None)
  Receive Date: 20120423
  Receipt Date: 20100428
  Transmission Date: 20120825
  Serious: Yes (Hospitalization)
  Sender: FDA-Public Use
  Company Number: PHHY2010US24781

PATIENT
  Age: 48 Year
  Sex: Female

DRUGS (6)
  1. FOLIC ACID [Concomitant]
  2. EXJADE [Suspect]
     Indication: SICKLE CELL ANAEMIA WITH CRISIS
     Dosage: 2000 MG/DAY, ORAL, 2500 MG, ORAL
     Route: 048
     Dates: start: 20090624
  3. EXJADE [Suspect]
     Indication: IRON OVERLOAD
     Dosage: 2000 MG/DAY, ORAL, 2500 MG, ORAL
     Route: 048
     Dates: start: 20090624
  4. EXJADE [Suspect]
     Indication: SICKLE CELL ANAEMIA WITH CRISIS
     Dosage: 2000 MG/DAY, ORAL, 2500 MG, ORAL
     Route: 048
     Dates: start: 20070801
  5. EXJADE [Suspect]
     Indication: IRON OVERLOAD
     Dosage: 2000 MG/DAY, ORAL, 2500 MG, ORAL
     Route: 048
     Dates: start: 20070801
  6. HYDROXYUREA [Concomitant]

REACTIONS (2)
  - PAIN [None]
  - SICKLE CELL ANAEMIA WITH CRISIS [None]
